FAERS Safety Report 5876472-2 (Version None)
Quarter: 2008Q3

REPORT INFORMATION
  Report Type: 
  Country: None (occurrence: None)
  Receive Date: 20080910
  Receipt Date: 20080904
  Transmission Date: 20090109
  Serious: Yes (Other)
  Sender: FDA-Public Use
  Company Number: A0745940A

PATIENT
  Age: 33 Year
  Sex: Male

DRUGS (5)
  1. FLOVENT [Suspect]
     Indication: ASTHMA
     Route: 055
     Dates: start: 20080701, end: 20080701
  2. PREDNISONE [Concomitant]
  3. AZITHROMYCIN [Concomitant]
  4. ALBUTEROL [Concomitant]
  5. BENADRYL [Concomitant]

REACTIONS (2)
  - CHORIORETINOPATHY [None]
  - VISUAL IMPAIRMENT [None]
